FAERS Safety Report 8208447-2 (Version None)
Quarter: 2012Q1

REPORT INFORMATION
  Report Type: 
  Country: None (occurrence: None)
  Receive Date: 20120314
  Receipt Date: 20120312
  Transmission Date: 20120608
  Serious: Yes (Other)
  Sender: FDA-Public Use
  Company Number: GB-PFIZER INC-2012065406

PATIENT
  Age: 72 Year
  Sex: Male
  Weight: 73 kg

DRUGS (4)
  1. ROSUVASTATIN [Concomitant]
     Dosage: UNK
     Dates: start: 20120301
  2. ACETYLSALICYLIC ACID [Concomitant]
     Dosage: UNK
     Dates: start: 20111202
  3. PERINDOPRIL ERBUMINE [Concomitant]
     Dosage: UNK
     Dates: start: 20111202
  4. ATORVASTATIN CALCIUM [Suspect]
     Dosage: UNK
     Dates: start: 20111202

REACTIONS (1)
  - PSORIASIS [None]
